FAERS Safety Report 23401916 (Version 3)
Quarter: 2024Q1

REPORT INFORMATION
  Report Type: Report from Study
  Country: CA (occurrence: CA)
  Receive Date: 20240115
  Receipt Date: 20240208
  Transmission Date: 20240410
  Serious: Yes (Hospitalization)
  Sender: FDA-Public Use
  Company Number: CA-ABBVIE-5585262

PATIENT
  Age: 75 Year
  Sex: Female

DRUGS (3)
  1. RINVOQ [Suspect]
     Active Substance: UPADACITINIB
     Indication: Rheumatoid arthritis
     Dosage: FORM STRENGTH: 15 MILLIGRAM
     Route: 048
     Dates: start: 20220628
  2. HYDROXYCHLOROQUINE [Concomitant]
     Active Substance: HYDROXYCHLOROQUINE
     Indication: Product used for unknown indication
     Dates: start: 20140514
  3. NADOLOL [Concomitant]
     Active Substance: NADOLOL
     Indication: Product used for unknown indication

REACTIONS (2)
  - Atrioventricular block complete [Recovered/Resolved]
  - Myopericarditis [Unknown]

NARRATIVE: CASE EVENT DATE: 20231118
